FAERS Safety Report 24401901 (Version 1)
Quarter: 2024Q4

REPORT INFORMATION
  Report Type: Spontaneous
  Country: CA (occurrence: CA)
  Receive Date: 20241007
  Receipt Date: 20241007
  Transmission Date: 20250115
  Serious: Yes (Other)
  Sender: AUROBINDO
  Company Number: CA-AUROBINDO-AUR-APL-2024-048040

PATIENT
  Age: 77 Year
  Sex: Female
  Weight: 71.667 kg

DRUGS (1)
  1. MEROPENEM [Suspect]
     Active Substance: MEROPENEM
     Indication: Pneumonia klebsiella
     Dosage: 100 MILLILITER 3EVERY 1DAYS
     Route: 042

REACTIONS (4)
  - Cardiac flutter [Recovering/Resolving]
  - Dyspnoea [Recovering/Resolving]
  - Heart rate irregular [Recovering/Resolving]
  - Hypertension [Recovering/Resolving]
